FAERS Safety Report 6985957-7 (Version None)
Quarter: 2010Q3

REPORT INFORMATION
  Report Type: 
  Country: None (occurrence: None)
  Receive Date: 20100915
  Receipt Date: 20100903
  Transmission Date: 20110219
  Serious: Yes (Other)
  Sender: FDA-Public Use
  Company Number: US-PFIZER INC-2008030551

PATIENT
  Sex: Female
  Weight: 68.481 kg

DRUGS (9)
  1. LYRICA [Suspect]
     Indication: CERVICAL SPINAL STENOSIS
     Dosage: 50 MG, 2X/DAY
     Route: 048
     Dates: start: 20060101
  2. LYRICA [Suspect]
     Indication: LUMBAR SPINAL STENOSIS
     Dosage: 50 MG, 3X/DAY
     Route: 048
     Dates: start: 20060101
  3. LYRICA [Suspect]
     Indication: NEUROPATHY PERIPHERAL
     Dosage: 150 MG, 2X/DAY
     Dates: start: 20060101
  4. NORCO [Suspect]
     Indication: PAIN
     Dosage: UNK
  5. MOBIC [Concomitant]
  6. TIMOLOL [Concomitant]
     Indication: GLAUCOMA
     Dosage: UNK
  7. TRAVATAN [Concomitant]
     Indication: GLAUCOMA
     Dosage: UNK
  8. NEURONTIN [Concomitant]
     Dosage: UNK
  9. TRAMADOL [Concomitant]
     Dosage: UNK

REACTIONS (13)
  - ABDOMINAL DISCOMFORT [None]
  - BALANCE DISORDER [None]
  - BODY HEIGHT DECREASED [None]
  - CERVICAL SPINAL STENOSIS [None]
  - CORNEAL OEDEMA [None]
  - DRUG INEFFECTIVE [None]
  - FALL [None]
  - LUMBAR SPINAL STENOSIS [None]
  - MACULAR DEGENERATION [None]
  - NAUSEA [None]
  - PAIN [None]
  - SOMNOLENCE [None]
  - WRONG TECHNIQUE IN DRUG USAGE PROCESS [None]
